FAERS Safety Report 4273654-0 (Version None)
Quarter: 2004Q1

REPORT INFORMATION
  Report Type: 
  Country: None (occurrence: None)
  Receive Date: 20040116
  Receipt Date: 20040116
  Transmission Date: 20041129
  Serious: No
  Sender: FDA-Public Use
  Company Number: None

PATIENT
  Sex: Male
  Weight: 79 kg

DRUGS (10)
  1. REMERON [Suspect]
     Indication: DEPRESSION
     Dosage: 30 MG HS ORAL
     Route: 048
     Dates: start: 20030918, end: 20030923
  2. REMERON [Suspect]
     Indication: INSOMNIA
     Dosage: 30 MG HS ORAL
     Route: 048
     Dates: start: 20030918, end: 20030923
  3. VITAMIN B COMPLEX CAP [Concomitant]
  4. VIT C [Concomitant]
  5. FOLATE [Concomitant]
  6. RISPERIDONE [Concomitant]
  7. IMIPRAMINE [Concomitant]
  8. IBUPROFEN [Concomitant]
  9. FELODIPINE [Concomitant]
  10. CYCLOBENZAPRINE [Concomitant]

REACTIONS (2)
  - SENSORY LOSS [None]
  - SWOLLEN TONGUE [None]
